FAERS Safety Report 15269621 (Version 3)
Quarter: 2018Q3

REPORT INFORMATION
  Report Type: Report from Study
  Country: IT (occurrence: IT)
  Receive Date: 20180813
  Receipt Date: 20180907
  Transmission Date: 20181010
  Serious: Yes (Hospitalization)
  Sender: FDA-Public Use
  Company Number: IT-ROCHE-2164647

PATIENT
  Age: 72 Year
  Sex: Male
  Weight: 80 kg

DRUGS (8)
  1. CARBOPLATIN. [Suspect]
     Active Substance: CARBOPLATIN
     Indication: TRANSITIONAL CELL CARCINOMA
     Dosage: DOSE: AT DOSES TO ACHIEVE AREA UNDER THE CONCENTRATION?TIME CURVE (AUC) OF 4.5 MG/ML/MIN ?DATE OF MO
     Route: 042
     Dates: start: 20180412
  2. DELTACORTENE [Concomitant]
     Active Substance: PREDNISONE
     Indication: PYREXIA
     Route: 048
     Dates: start: 20180718
  3. PARACETAMOL [Concomitant]
     Active Substance: ACETAMINOPHEN
     Indication: PYREXIA
     Route: 048
     Dates: start: 20180624
  4. ZOFRAN [Concomitant]
     Active Substance: ONDANSETRON HYDROCHLORIDE
     Indication: NAUSEA
     Route: 048
     Dates: start: 20180418
  5. BLOOD TRANSFUSION [Concomitant]
     Active Substance: HUMAN RED BLOOD CELL
     Indication: ANAEMIA
     Route: 042
     Dates: start: 20180627, end: 20180627
  6. ATEZOLIZUMAB. [Suspect]
     Active Substance: ATEZOLIZUMAB
     Indication: TRANSITIONAL CELL CARCINOMA
     Dosage: DATE OF MOST RECENT DOSE OF BLINDED ATEZOLIZUMAB TO SAE ONSET 11/JUL/2018
     Route: 042
     Dates: start: 20180412
  7. GEMCITABINE [Suspect]
     Active Substance: GEMCITABINE\GEMCITABINE HYDROCHLORIDE
     Indication: TRANSITIONAL CELL CARCINOMA
     Dosage: DATE OF MOST RECENT DOSE OF GEMCITABINE OF 1629 MG/M2 PRIOR TO SAE ONSET 18/JUL/2018.
     Route: 042
     Dates: start: 20180412
  8. LEVOPRAID [Concomitant]
     Indication: NAUSEA
     Route: 048
     Dates: start: 20180620

REACTIONS (1)
  - Pancytopenia [Recovered/Resolved]

NARRATIVE: CASE EVENT DATE: 20180723
